FAERS Safety Report 15813676 (Version 1)
Quarter: 2019Q1

REPORT INFORMATION
  Report Type: Spontaneous
  Country: US (occurrence: US)
  Receive Date: 20190111
  Receipt Date: 20190111
  Transmission Date: 20190417
  Serious: Yes (Death)
  Sender: FDA-Public Use
  Company Number: US-INSYS THERAPEUTICS, INC-INS201901-000003

PATIENT
  Age: 22 Year
  Sex: Male

DRUGS (9)
  1. 11-HYDROXY DELTA-9 THC [Suspect]
     Active Substance: 11-HYDROXY-.DELTA.9-TETRAHYDROCANNABINOL
  2. METHAMPHETAMINE [Suspect]
     Active Substance: METHAMPHETAMINE
  3. DELORAZEPAM [Suspect]
     Active Substance: DELORAZEPAM
  4. DRONABINOL. [Suspect]
     Active Substance: DRONABINOL
     Indication: PRODUCT USED FOR UNKNOWN INDICATION
  5. LORAZEPAM. [Suspect]
     Active Substance: LORAZEPAM
  6. MORPHINE [Suspect]
     Active Substance: MORPHINE
  7. DELTA-9 CARBOXY THC [Suspect]
     Active Substance: DELTA(9)-TETRAHYDROCANNABINOLIC ACID
  8. AMPHETAMINE [Suspect]
     Active Substance: AMPHETAMINE
  9. CYCLOPROPYLFENTANYL [Suspect]
     Active Substance: CYCLOPROPYLFENTANYL

REACTIONS (1)
  - Death [Fatal]

NARRATIVE: CASE EVENT DATE: 2017
